FAERS Safety Report 8147240-6 (Version None)
Quarter: 2012Q1

REPORT INFORMATION
  Report Type: 
  Country: None (occurrence: None)
  Receive Date: 20120218
  Receipt Date: 20110126
  Transmission Date: 20120608
  Serious: No
  Sender: FDA-Public Use
  Company Number: US-ALLERGAN-1101217US

PATIENT
  Sex: Female

DRUGS (2)
  1. BOTOX COSMETIC [Suspect]
     Indication: PRODUCT USED FOR UNKNOWN INDICATION
     Dosage: UNK
     Dates: start: 20110101, end: 20110101
  2. BENZOCAINE [Concomitant]
     Indication: PREMEDICATION
     Dosage: UNK
     Route: 061
     Dates: start: 20110101, end: 20110101

REACTIONS (1)
  - RASH [None]
